FAERS Safety Report 25948055 (Version 1)
Quarter: 2025Q4

REPORT INFORMATION
  Report Type: Spontaneous
  Country: US (occurrence: US)
  Receive Date: 20251022
  Receipt Date: 20251022
  Transmission Date: 20260118
  Serious: Yes (Hospitalization)
  Sender: DR REDDYS
  Company Number: US-MLMSERVICE-20161116-0501281-1

PATIENT
  Age: 81 Year
  Sex: Female

DRUGS (2)
  1. LEVOFLOXACIN [Suspect]
     Active Substance: LEVOFLOXACIN
     Indication: Urinary tract infection
     Route: 065
  2. MESALAMINE [Concomitant]
     Active Substance: MESALAMINE
     Indication: Colitis ulcerative
     Route: 065

REACTIONS (1)
  - Enterocolitis [Recovered/Resolved]
